FAERS Safety Report 26194250 (Version 1)
Quarter: 2025Q4

REPORT INFORMATION
  Report Type: Spontaneous
  Country: US (occurrence: US)
  Receive Date: 20251224
  Receipt Date: 20251224
  Transmission Date: 20260117
  Serious: Yes (Other)
  Sender: SUPERNUS
  Company Number: US-SUP-SUP202512-005207

PATIENT
  Age: 48 Year
  Sex: Female

DRUGS (8)
  1. TOPIRAMATE [Suspect]
     Active Substance: TOPIRAMATE
     Indication: Trigeminal neuralgia
     Dosage: 50MG DAILY
  2. TOPIRAMATE [Suspect]
     Active Substance: TOPIRAMATE
     Dosage: 100MG DAILY
  3. TEGRETOL [Suspect]
     Active Substance: CARBAMAZEPINE
     Indication: Trigeminal neuralgia
     Dosage: 100MG DAILY
  4. TEGRETOL [Suspect]
     Active Substance: CARBAMAZEPINE
     Dosage: 50MG DAILY
  5. LYRICA [Concomitant]
     Active Substance: PREGABALIN
     Indication: Trigeminal neuralgia
  6. BACLOFEN [Concomitant]
     Active Substance: BACLOFEN
     Indication: Trigeminal neuralgia
  7. NALTREXONE [Concomitant]
     Active Substance: NALTREXONE
     Indication: Trigeminal neuralgia
  8. TOPAMAX [Concomitant]
     Active Substance: TOPIRAMATE
     Indication: Trigeminal neuralgia

REACTIONS (3)
  - Mental impairment [Recovered/Resolved]
  - Cognitive disorder [Recovered/Resolved]
  - Product use in unapproved indication [Unknown]
